FAERS Safety Report 5447871-8 (Version None)
Quarter: 2007Q3

REPORT INFORMATION
  Report Type: 
  Country: None (occurrence: None)
  Receive Date: 20070910
  Receipt Date: 20070829
  Transmission Date: 20080115
  Serious: Yes (Hospitalization, Other)
  Sender: FDA-Public Use
  Company Number: US-PFIZER INC-2007057430

PATIENT
  Sex: Male
  Weight: 97.5 kg

DRUGS (5)
  1. CHANTIX [Suspect]
     Indication: SMOKING CESSATION THERAPY
     Dates: start: 20070604, end: 20070616
  2. CRESTOR [Concomitant]
  3. ATENOLOL [Concomitant]
  4. ASPIRIN [Concomitant]
  5. SPIRIVA [Concomitant]
     Route: 055

REACTIONS (4)
  - AMNESIA [None]
  - FATIGUE [None]
  - IRRITABILITY [None]
  - SUICIDE ATTEMPT [None]
